FAERS Safety Report 8919706 (Version 2)
Quarter: 2012Q4

REPORT INFORMATION
  Report Type: 
  Country: JP (occurrence: JP)
  Receive Date: 20121121
  Receipt Date: 20121130
  Transmission Date: 20130627
  Serious: Yes (Hospitalization)
  Sender: FDA-Public Use
  Company Number: JP-ELI_LILLY_AND_COMPANY-JP201211003151

PATIENT
  Age: 38 Year
  Sex: Male

DRUGS (15)
  1. CYMBALTA [Suspect]
     Indication: INTERCOSTAL NEURALGIA
     Dosage: 20 mg, qd
     Route: 048
     Dates: start: 20120905, end: 20120910
  2. CYMBALTA [Suspect]
     Dosage: 40 mg, qd
     Route: 048
     Dates: start: 20120911, end: 20120925
  3. TRYPTANOL [Concomitant]
     Indication: INTERCOSTAL NEURALGIA
     Dosage: 20 mg, qd
     Route: 048
     Dates: start: 20120907, end: 20120910
  4. TRYPTANOL [Concomitant]
     Dosage: 30 mg, qd
     Route: 048
     Dates: start: 20120911
  5. TRAMADOL HYDROCHLORIDE AND ACETAMINOPHEN [Concomitant]
     Indication: INTERCOSTAL NEURALGIA
     Dosage: 1 DF, prn
     Route: 048
  6. MEXILETINE HYDROCHLORIDE [Concomitant]
     Indication: INTERCOSTAL NEURALGIA
     Dosage: 50 mg, tid
     Route: 048
     Dates: start: 20120912, end: 20120925
  7. BROTIZOLAM [Concomitant]
     Indication: INSOMNIA
     Dosage: 0.25 mg, prn
     Route: 048
     Dates: start: 20120906, end: 20120925
  8. SENNOSIDE A+B [Concomitant]
     Indication: CONSTIPATION
     Dosage: 12 mg, prn
     Route: 048
     Dates: start: 20120917, end: 20120925
  9. MARCAIN [Concomitant]
     Indication: INTERCOSTAL NEURALGIA
     Dosage: UNK
     Route: 008
     Dates: start: 20120906, end: 20120916
  10. KAKKONTOU [Concomitant]
     Dosage: UNK
     Route: 048
     Dates: start: 20120831
  11. NEUROTROPIN                        /06251301/ [Concomitant]
     Indication: INTERCOSTAL NEURALGIA
     Dosage: 4 DF, UNK
     Route: 048
     Dates: start: 20120831, end: 20120925
  12. ETIZOLAM [Concomitant]
     Indication: INSOMNIA
     Dosage: UNK, prn
     Route: 048
     Dates: start: 20120831
  13. CELECOX [Concomitant]
     Indication: INTERCOSTAL NEURALGIA
     Dosage: 100 mg, bid
     Route: 048
     Dates: start: 20120918, end: 20120925
  14. LYRICA [Concomitant]
     Indication: INTERCOSTAL NEURALGIA
     Dosage: UNK
     Dates: end: 20120910
  15. LYRICA [Concomitant]
     Dosage: UNK
     Dates: start: 20120919

REACTIONS (2)
  - Hepatitis [Recovered/Resolved]
  - Off label use [Recovered/Resolved]
